FAERS Safety Report 20095271 (Version 1)
Quarter: 2021Q4

REPORT INFORMATION
  Report Type: Spontaneous
  Country: NZ (occurrence: NZ)
  Receive Date: 20211122
  Receipt Date: 20211122
  Transmission Date: 20220303
  Serious: Yes (Other)
  Sender: FDA-Public Use
  Company Number: NZ-GLAXOSMITHKLINE-NZ2021APC233025

PATIENT
  Age: 75 Year
  Sex: Female

DRUGS (1)
  1. FLUTICASONE PROPIONATE [Suspect]
     Active Substance: FLUTICASONE PROPIONATE
     Indication: Ear congestion
     Dosage: UNK

REACTIONS (10)
  - Haemorrhage [Unknown]
  - Nasal pruritus [Recovered/Resolved]
  - Epistaxis [Unknown]
  - Fear [Unknown]
  - Nasal discomfort [Unknown]
  - Ear congestion [Unknown]
  - Sneezing [Recovered/Resolved]
  - Extra dose administered [Unknown]
  - Drug ineffective [Unknown]
  - Product use in unapproved indication [Unknown]
